FAERS Safety Report 5429349-0 (Version None)
Quarter: 2007Q3

REPORT INFORMATION
  Report Type: 
  Country: None (occurrence: None)
  Receive Date: 20070827
  Receipt Date: 20070820
  Transmission Date: 20080115
  Serious: No
  Sender: FDA-Public Use
  Company Number: P-PLA482-08-44

PATIENT
  Age: 24 Year
  Sex: Female

DRUGS (2)
  1. PLAN R (LEVONORGESTREL) [Suspect]
     Indication: CONTRACEPTION
     Dosage: 0.75MG Q12H (2 TABLETS) ORAL
     Route: 048
     Dates: start: 20050501, end: 20050501
  2. ANTIBIOTICS (UNSPECIFIED) [Concomitant]

REACTIONS (3)
  - ABORTION SPONTANEOUS [None]
  - DRUG EXPOSURE DURING PREGNANCY [None]
  - DRUG INEFFECTIVE [None]
